FAERS Safety Report 6309664-9 (Version None)
Quarter: 2009Q3

REPORT INFORMATION
  Report Type: 
  Country: None (occurrence: None)
  Receive Date: 20090814
  Receipt Date: 20090810
  Transmission Date: 20100115
  Serious: Yes (Other)
  Sender: FDA-Public Use
  Company Number: US-B.I. PHARMACEUTICALS,INC./RIDGEFIELD-2009-BP-09485BP

PATIENT
  Age: 74 Year
  Sex: Male

DRUGS (1)
  1. FLOMAX [Suspect]
     Indication: CYSTITIS INTERSTITIAL
     Dates: start: 19990101

REACTIONS (1)
  - LOSS OF CONSCIOUSNESS [None]
